FAERS Safety Report 13172585 (Version 1)
Quarter: 2017Q1

REPORT INFORMATION
  Report Type: Spontaneous
  Country: NO (occurrence: None)
  Receive Date: 20170131
  Receipt Date: 20170131
  Transmission Date: 20170428
  Serious: No
  Sender: FDA-Public Use
  Company Number: NO-NOMAADVRE-RELISSO-2016-23079

PATIENT
  Sex: Male

DRUGS (5)
  1. MYCOBACTERIUM BOVIS (BACILLUS OF CALMETTE AND GUERIN) LIVE ATTENUATED [Suspect]
     Active Substance: BACILLUS CALMETTE-GUERIN SUBSTRAIN TICE LIVE ANTIGEN
     Indication: BLADDER CANCER
     Dosage: 1 AMPUILAE EVERY WEEK, TOTAL OF 6 DOSES?POWDER FOR INSTILLATION FLUID
     Route: 043
     Dates: start: 20150511, end: 20150615
  2. PLAVIX [Concomitant]
     Active Substance: CLOPIDOGREL BISULFATE
  3. ALBYL-E [Concomitant]
     Active Substance: ASPIRIN\MAGNESIUM OXIDE
  4. CRESTOR [Concomitant]
     Active Substance: ROSUVASTATIN CALCIUM
  5. DUODART [Concomitant]
     Active Substance: DUTASTERIDE\TAMSULOSIN

REACTIONS (4)
  - Infective spondylitis [None]
  - Spinal osteoarthritis [None]
  - Weight decreased [None]
  - Disseminated Bacillus Calmette-Guerin infection [None]
